FAERS Safety Report 8580835-4 (Version None)
Quarter: 2012Q3

REPORT INFORMATION
  Report Type: 
  Country: None (occurrence: None)
  Receive Date: 20120726
  Receipt Date: 20120716
  Transmission Date: 20120928
  Serious: Yes (Hospitalization)
  Sender: FDA-Public Use
  Company Number: US-2012-10944

PATIENT
  Age: 45 Year
  Sex: Female

DRUGS (3)
  1. OPC-41061 (TOLAPTAN) [Suspect]
     Indication: CONGENITAL CYSTIC KIDNEY DISEASE
     Dosage: 60 MG, DAILY DOSE, ORAL
     Route: 048
     Dates: start: 20111015
  2. OMEPRAZOLE [Concomitant]
  3. RAMIPRIL [Concomitant]

REACTIONS (2)
  - CONDITION AGGRAVATED [None]
  - HEPATIC CYST [None]
